FAERS Safety Report 13783145 (Version 4)
Quarter: 2017Q3

REPORT INFORMATION
  Report Type: Report from Study
  Country: CA (occurrence: CA)
  Receive Date: 20170724
  Receipt Date: 20170815
  Transmission Date: 20171127
  Serious: Yes (Hospitalization, Other)
  Sender: FDA-Public Use
  Company Number: CA-GLAXOSMITHKLINE-CA2017GSK110374

PATIENT
  Age: 50 Year
  Sex: Male
  Weight: 55 kg

DRUGS (11)
  1. LAMIVUDINE. [Concomitant]
     Active Substance: LAMIVUDINE
     Indication: HIV INFECTION
     Dosage: 300 MG, UNK
     Route: 048
     Dates: start: 20160330, end: 20170708
  2. RITONAVIR. [Concomitant]
     Active Substance: RITONAVIR
     Indication: HIV INFECTION
     Dosage: 200 MG, UNK
     Route: 048
     Dates: start: 20160330, end: 20170708
  3. PANTOPRAZOLE [Concomitant]
     Active Substance: PANTOPRAZOLE
     Dosage: 8 MG, PER HOUR
     Route: 042
  4. FOSTEMSAVIR [Suspect]
     Active Substance: FOSTEMSAVIR TROMETHAMINE
     Dosage: UNK
  5. MICAFUNGIN [Concomitant]
     Active Substance: MICAFUNGIN
     Dosage: 100 MG, UNK
  6. VANCOMYCIN [Concomitant]
     Active Substance: VANCOMYCIN
  7. FOSTEMSAVIR [Suspect]
     Active Substance: FOSTEMSAVIR TROMETHAMINE
     Indication: HIV INFECTION
     Dosage: 1200 MG, UNK
     Route: 048
     Dates: start: 20160330
  8. DARUNAVIR [Concomitant]
     Active Substance: DARUNAVIR
     Dosage: 1200 MG, UNK
     Route: 048
     Dates: start: 20160330, end: 20170708
  9. DOLUTEGRAVIR [Concomitant]
     Active Substance: DOLUTEGRAVIR
     Indication: HIV INFECTION
     Dosage: 100, UNK
     Route: 048
     Dates: start: 20160330, end: 20170708
  10. PIPERACILLIN AND TAZOBACTAM [Concomitant]
     Active Substance: PIPERACILLIN SODIUM\TAZOBACTAM SODIUM
     Dosage: 3.375 G, Q6H
     Route: 042
  11. CEFUROXIME AXETIL. [Suspect]
     Active Substance: CEFUROXIME AXETIL
     Indication: SINUSITIS

REACTIONS (1)
  - Clostridium difficile infection [Recovered/Resolved]

NARRATIVE: CASE EVENT DATE: 20170708
